FAERS Safety Report 8780199 (Version 1)
Quarter: 2012Q4

REPORT INFORMATION
  Report Type: Spontaneous
  Country: US (occurrence: None)
  Receive Date: 20120904
  Receipt Date: 20120904
  Transmission Date: 20130627
  Serious: Yes (Hospitalization)
  Sender: FDA-Public Use
  Company Number: None

PATIENT
  Age: 75 Year
  Sex: Male
  Weight: 95.7 kg

DRUGS (3)
  1. LENALIDOMIDE [Suspect]
  2. EVEROLIMUS [Suspect]
  3. RV-NHL-P1-0466 [Concomitant]

REACTIONS (1)
  - Deep vein thrombosis [None]
